FAERS Safety Report 4657110-3 (Version None)
Quarter: 2005Q2

REPORT INFORMATION
  Report Type: 
  Country: None (occurrence: None)
  Receive Date: 20050506
  Receipt Date: 20050426
  Transmission Date: 20051028
  Serious: Yes (Other)
  Sender: FDA-Public Use
  Company Number: 2005064628

PATIENT
  Age: 42 Year
  Sex: Male
  Weight: 68.0396 kg

DRUGS (3)
  1. DILANTIN KAPSEAL [Suspect]
     Indication: CONVULSION
     Dosage: (30 MG, 2 IN 1 D), ORAL
     Route: 048
  2. PHENYTOIN SODIUM [Suspect]
     Indication: CONVULSION
     Dosage: 500 MG (1 IN 1 D), ORAL
     Route: 048
  3. TIOTIXENE (TIOTIXENE) [Concomitant]

REACTIONS (4)
  - ANTICONVULSANT DRUG LEVEL DECREASED [None]
  - CONVULSION [None]
  - PHARMACEUTICAL PRODUCT COUNTERFEIT [None]
  - TREATMENT NONCOMPLIANCE [None]
